FAERS Safety Report 6808892-3 (Version None)
Quarter: 2010Q2

REPORT INFORMATION
  Report Type: 
  Country: None (occurrence: None)
  Receive Date: 20100630
  Receipt Date: 20091028
  Transmission Date: 20101027
  Serious: No
  Sender: FDA-Public Use
  Company Number: US-PFIZER INC-2009264344

PATIENT
  Sex: Male
  Weight: 113 kg

DRUGS (1)
  1. ARTHROTEC [Suspect]
     Indication: INFLAMMATION
     Dosage: DICLOFENAC/MISOPROSTOL  75MG/0.2MG
     Dates: end: 20090801

REACTIONS (2)
  - ARTHRALGIA [None]
  - TENDON PAIN [None]
